FAERS Safety Report 8543093-2 (Version None)
Quarter: 2012Q3

REPORT INFORMATION
  Report Type: 
  Country: None (occurrence: None)
  Receive Date: 20120727
  Receipt Date: 20110826
  Transmission Date: 20120928
  Serious: No
  Sender: FDA-Public Use
  Company Number: US-MYLANLABS-2011S1018126

PATIENT
  Age: 54 Year
  Sex: Male

DRUGS (1)
  1. LEVOTHYROXINE SODIUM [Suspect]
     Indication: THYROID DISORDER
     Route: 048
     Dates: start: 20090801

REACTIONS (4)
  - ABDOMINAL DISCOMFORT [None]
  - MUSCULAR WEAKNESS [None]
  - HAEMORRHOIDS [None]
  - HEADACHE [None]
